FAERS Safety Report 5088127-5 (Version None)
Quarter: 2006Q3

REPORT INFORMATION
  Report Type: 
  Country: None (occurrence: None)
  Receive Date: 20060823
  Receipt Date: 20060823
  Transmission Date: 20061208
  Serious: No
  Sender: FDA-Public Use
  Company Number: None

PATIENT
  Sex: Female
  Weight: 74.8435 kg

DRUGS (2)
  1. BOTOX [Suspect]
     Indication: NECK PAIN
     Dosage: VIAL ONCE IM
     Route: 030
     Dates: start: 20051115, end: 20051115
  2. NUERONTIN [Concomitant]

REACTIONS (4)
  - DRUG TOXICITY [None]
  - IATROGENIC INJURY [None]
  - PARALYSIS [None]
  - PHARMACEUTICAL PRODUCT COMPLAINT [None]
